FAERS Safety Report 7933276-4 (Version None)
Quarter: 2011Q4

REPORT INFORMATION
  Report Type: 
  Country: None (occurrence: None)
  Receive Date: 20111122
  Receipt Date: 20111117
  Transmission Date: 20120403
  Serious: Yes (Other)
  Sender: FDA-Public Use
  Company Number: US-ABBOTT-11P-163-0851293-00

PATIENT
  Age: 66 Year
  Sex: Male

DRUGS (10)
  1. METHOTREXATE [Concomitant]
     Indication: PRODUCT USED FOR UNKNOWN INDICATION
  2. NEXIUM [Concomitant]
     Indication: PRODUCT USED FOR UNKNOWN INDICATION
  3. HUMIRA [Suspect]
     Dates: start: 20110801
  4. ASACOL [Concomitant]
     Indication: CROHN'S DISEASE
  5. ALLOPURINOL [Concomitant]
     Indication: GOUT
  6. TRILIPIX [Concomitant]
     Indication: PRODUCT USED FOR UNKNOWN INDICATION
  7. HUMIRA [Suspect]
     Indication: CROHN'S DISEASE
     Dosage: EVERY 2 WEEKS
     Dates: start: 20110501
  8. IMODIUM [Concomitant]
     Indication: PRODUCT USED FOR UNKNOWN INDICATION
  9. LEVOTHYROXINE SODIUM [Concomitant]
     Indication: PRODUCT USED FOR UNKNOWN INDICATION
  10. LEXAPRO [Concomitant]
     Indication: PRODUCT USED FOR UNKNOWN INDICATION

REACTIONS (7)
  - DRUG INEFFECTIVE [None]
  - DYSPHONIA [None]
  - INCORRECT DOSE ADMINISTERED [None]
  - HERNIA [None]
  - THROAT IRRITATION [None]
  - DEVICE MALFUNCTION [None]
  - INJECTION SITE PAIN [None]
